FAERS Safety Report 4363852-X (Version None)
Quarter: 2004Q2

REPORT INFORMATION
  Report Type: 
  Country: None (occurrence: None)
  Receive Date: 20040519
  Receipt Date: 20040504
  Transmission Date: 20050107
  Serious: Yes (Other)
  Sender: FDA-Public Use
  Company Number: BR-SHR-04-023966

PATIENT
  Age: 39 Year
  Sex: Female
  Weight: 56 kg

DRUGS (2)
  1. YASMIN [Suspect]
     Indication: ORAL CONTRACEPTION
     Dosage: 1 TAB(S), 1X/DAY, ORAL
     Route: 048
     Dates: start: 20040320, end: 20040405
  2. SCAFLAN (NIMESULIDE) [Concomitant]

REACTIONS (9)
  - DYSPEPSIA [None]
  - FOOD POISONING [None]
  - GASTRIC DISORDER [None]
  - HEADACHE [None]
  - NAUSEA [None]
  - OEDEMA PERIPHERAL [None]
  - PHARYNGOLARYNGEAL PAIN [None]
  - SKIN DISCOLOURATION [None]
  - VAGINAL HAEMORRHAGE [None]
